FAERS Safety Report 8076096-5 (Version None)
Quarter: 2012Q1

REPORT INFORMATION
  Report Type: 
  Country: None (occurrence: None)
  Receive Date: 20120127
  Receipt Date: 20110822
  Transmission Date: 20120608
  Serious: No
  Sender: FDA-Public Use
  Company Number: US-GLAXOSMITHKLINE-A0942579A

PATIENT
  Sex: Female

DRUGS (3)
  1. LISINOPRIL [Suspect]
     Route: 048
  2. WELLBUTRIN [Suspect]
     Route: 048
  3. LOVASTATIN [Suspect]
     Route: 048

REACTIONS (3)
  - CHOLELITHIASIS [None]
  - BACK PAIN [None]
  - BONE PAIN [None]
